FAERS Safety Report 9242664 (Version 2)
Quarter: 2013Q4

REPORT INFORMATION
  Report Type: Spontaneous
  Country: IT (occurrence: IT)
  Receive Date: 20130419
  Receipt Date: 20131016
  Transmission Date: 20140711
  Serious: Yes (Other)
  Sender: FDA-Public Use
  Company Number: IT-ELI_LILLY_AND_COMPANY-IT201304003354

PATIENT
  Age: 38 Year
  Sex: Female

DRUGS (4)
  1. CYMBALTA [Suspect]
     Indication: DYSTHYMIC DISORDER
     Dosage: 60 MG, UNKNOWN
     Route: 065
     Dates: start: 201212
  2. CYMBALTA [Suspect]
     Dosage: 120 MG, UNKNOWN
     Route: 065
  3. CYMBALTA [Suspect]
     Dosage: 60 MG, UNKNOWN
     Route: 065
     Dates: end: 201304
  4. DELORAZEPAM [Concomitant]
     Dosage: UNK, UNKNOWN
     Route: 065

REACTIONS (3)
  - Transaminases increased [Unknown]
  - Malaise [Unknown]
  - Asthenia [Unknown]
